FAERS Safety Report 4523502-6 (Version None)
Quarter: 2004Q4

REPORT INFORMATION
  Report Type: 
  Country: None (occurrence: None)
  Receive Date: 20041117
  Receipt Date: 20031001
  Transmission Date: 20050328
  Serious: Yes (Other)
  Sender: FDA-Public Use
  Company Number: NSADSS2003014595

PATIENT

DRUGS (2)
  1. LEVAQUIN [Suspect]
     Dosage: INTRAVENOUS DRIP
     Route: 042
  2. ENOXAPARIN SODIUM [Suspect]

REACTIONS (2)
  - DRUG INTERACTION [None]
  - PROTHROMBIN LEVEL DECREASED [None]
